FAERS Safety Report 6896207-4 (Version None)
Quarter: 2010Q3

REPORT INFORMATION
  Report Type: 
  Country: None (occurrence: None)
  Receive Date: 20100802
  Receipt Date: 20100726
  Transmission Date: 20110219
  Serious: Yes (Congenital Anomaly)
  Sender: FDA-Public Use
  Company Number: A0872551A

PATIENT
  Sex: Male

DRUGS (4)
  1. COMBIVIR [Suspect]
     Indication: ANTIVIRAL TREATMENT
     Dates: start: 20041219, end: 20050304
  2. SUSTIVA [Suspect]
     Indication: ANTIVIRAL TREATMENT
  3. VIRACEPT [Suspect]
     Indication: ANTIVIRAL TREATMENT
     Dates: start: 20041219, end: 20050304
  4. FERROUS SULFATE [Concomitant]

REACTIONS (3)
  - CONGENITAL HYDRONEPHROSIS [None]
  - DRUG EXPOSURE DURING PREGNANCY [None]
  - VESICOURETERIC REFLUX [None]
